FAERS Safety Report 23814648 (Version 1)
Quarter: 2024Q2

REPORT INFORMATION
  Report Type: Spontaneous
  Country: CN (occurrence: CN)
  Receive Date: 20240503
  Receipt Date: 20240503
  Transmission Date: 20240716
  Serious: Yes (Hospitalization, Other)
  Sender: FDA-Public Use
  Company Number: None

PATIENT
  Age: 73 Year
  Sex: Male
  Weight: 63 kg

DRUGS (13)
  1. CYCLOPHOSPHAMIDE [Suspect]
     Active Substance: CYCLOPHOSPHAMIDE
     Indication: Non-Hodgkin^s lymphoma
     Dosage: 0.6 G, ONE TIME IN ONE DAY, ST, DILUTED WITH 500 ML OF 0.9% SODIUM CHLORIDE, THIRD CYCLE OF CHEMOTHE
     Route: 041
     Dates: start: 20240402, end: 20240402
  2. CYCLOPHOSPHAMIDE [Suspect]
     Active Substance: CYCLOPHOSPHAMIDE
     Dosage: UNK, FOURTH CYCLE OF CHEMOTHERAPY
     Route: 041
     Dates: start: 20240424
  3. SODIUM CHLORIDE [Suspect]
     Active Substance: SODIUM CHLORIDE
     Indication: Medication dilution
     Dosage: 500 ML, ONE TIME IN ONE DAY, ST, USED TO DILUTE 0.6 G CYCLOPHOSPHAMIDE, DOSAGE FORM: INJECTION, STRE
     Route: 041
     Dates: start: 20240402, end: 20240402
  4. SODIUM CHLORIDE [Suspect]
     Active Substance: SODIUM CHLORIDE
     Dosage: 100 ML, ONE TIME IN ONE DAY, ST, USED TO DILUTE 1 MG VINCRISTINE SULFATE, DOSAGE FORM: INJECTION, ST
     Route: 041
     Dates: start: 20240402, end: 20240402
  5. SODIUM CHLORIDE [Suspect]
     Active Substance: SODIUM CHLORIDE
     Dosage: 500 ML, ONE TIME IN ONE DAY, ST, USED TO DILUTE 100 MG RITUXIMAB, DOSAGE FORM: INJECTION, STRENGTH:
     Route: 041
     Dates: start: 20240402, end: 20240402
  6. SODIUM CHLORIDE [Suspect]
     Active Substance: SODIUM CHLORIDE
     Dosage: 100 ML, ST, USED TO DILUTE RITUXIMAB 100 MG, DOSAGE FORM: INJECTION, STRENGTH: 0.9%, THIRD CYCLE OF
     Route: 041
     Dates: start: 20240402
  7. SODIUM CHLORIDE [Suspect]
     Active Substance: SODIUM CHLORIDE
     Dosage: UNK, FOURTH CYCLE OF CHEMOTHERAPY
     Route: 041
     Dates: start: 20240424
  8. SINTILIMAB [Suspect]
     Active Substance: SINTILIMAB
     Indication: Non-Hodgkin^s lymphoma
     Dosage: 100 MG, ONE TIME IN ONE DAY
     Route: 041
     Dates: start: 20240402, end: 20240402
  9. RITUXIMAB [Suspect]
     Active Substance: RITUXIMAB
     Indication: Non-Hodgkin^s lymphoma
     Dosage: 500 MG, ONE TIME IN ONE DAY, ST, DILUTED WITH 500 ML OF 0.9% SODIUM CHLORIDE, THIRD CYCLE OF CHEMOTH
     Route: 041
     Dates: start: 20240402, end: 20240402
  10. RITUXIMAB [Suspect]
     Active Substance: RITUXIMAB
     Dosage: 100 MG, ST, DILUTED WITH 100 ML OF 0.9% SODIUM CHLORIDE, THIRD CYCLE OF CHEMOTHERAPY
     Route: 041
     Dates: start: 20240402
  11. RITUXIMAB [Suspect]
     Active Substance: RITUXIMAB
     Dosage: UNK, FOURTH CYCLE OF CHEMOTHERAPY
     Route: 041
     Dates: start: 20240424
  12. VINCRISTINE SULFATE [Suspect]
     Active Substance: VINCRISTINE SULFATE
     Indication: Non-Hodgkin^s lymphoma
     Dosage: 1 MG, ONE TIME IN ONE DAY, ST, DILUTED WITH 500 ML OF 0.9% SODIUM CHLORIDE, THIRD CYCLE OF CHEMOTHER
     Route: 041
     Dates: start: 20240402, end: 20240402
  13. VINCRISTINE SULFATE [Suspect]
     Active Substance: VINCRISTINE SULFATE
     Dosage: UNK, FOURTH CYCLE OF CHEMOTHERAPY
     Route: 041
     Dates: start: 20240424

REACTIONS (5)
  - Myelosuppression [Recovering/Resolving]
  - White blood cell count decreased [Recovering/Resolving]
  - Platelet count decreased [Recovering/Resolving]
  - Neutrophil count decreased [Recovering/Resolving]
  - Haemoglobin decreased [Recovering/Resolving]

NARRATIVE: CASE EVENT DATE: 20240424
